FAERS Safety Report 5834531-4 (Version None)
Quarter: 2008Q3

REPORT INFORMATION
  Report Type: 
  Country: None (occurrence: None)
  Receive Date: 20080722
  Receipt Date: 20080104
  Transmission Date: 20090109
  Serious: Yes (Hospitalization)
  Sender: FDA-Public Use
  Company Number: 2008BI000716

PATIENT
  Age: 49 Year
  Sex: Female
  Weight: 84.8226 kg

DRUGS (2)
  1. AVONEX [Suspect]
     Indication: MULTIPLE SCLEROSIS
     Dosage: 30 UG;QW;IM  30 UG;QW;IM  30 UG;QW;IM
     Route: 030
     Dates: start: 20010101, end: 20030101
  2. AVONEX [Suspect]
     Indication: MULTIPLE SCLEROSIS
     Dosage: 30 UG;QW;IM  30 UG;QW;IM  30 UG;QW;IM
     Route: 030
     Dates: start: 20030101

REACTIONS (6)
  - ABASIA [None]
  - CHEST PAIN [None]
  - KIDNEY INFECTION [None]
  - MEMORY IMPAIRMENT [None]
  - MENOPAUSE [None]
  - MULTIPLE SCLEROSIS RELAPSE [None]
